FAERS Safety Report 6200770-6 (Version None)
Quarter: 2009Q2

REPORT INFORMATION
  Report Type: 
  Country: None (occurrence: None)
  Receive Date: 20090522
  Receipt Date: 20080808
  Transmission Date: 20091009
  Serious: Yes (Hospitalization)
  Sender: FDA-Public Use
  Company Number: US-ALEXION-A200800135

PATIENT
  Sex: Female
  Weight: 70.1 kg

DRUGS (14)
  1. SOLIRIS [Suspect]
     Indication: PAROXYSMAL NOCTURNAL HAEMOGLOBINURIA
     Dosage: 600 MG, SINGLE
     Route: 042
     Dates: start: 20080417, end: 20080417
  2. SOLIRIS [Suspect]
     Dosage: 600 MG, SINGLE
     Route: 042
     Dates: start: 20080424, end: 20080424
  3. SOLIRIS [Suspect]
     Dosage: 600 MG, SINGLE
     Route: 042
     Dates: start: 20080501, end: 20080501
  4. SOLIRIS [Suspect]
     Dosage: 600 MG, SINGLE
     Route: 042
     Dates: start: 20080508, end: 20080508
  5. SOLIRIS [Suspect]
     Dosage: 900 MG, SINGLE
     Route: 042
     Dates: start: 20080515, end: 20080515
  6. SOLIRIS [Suspect]
     Dosage: 900 MG, SINGLE
     Route: 042
     Dates: start: 20080529, end: 20080529
  7. SOLIRIS [Suspect]
     Dosage: UNK, SINGLE
     Route: 042
     Dates: start: 20080613, end: 20080613
  8. MENACTRA [Suspect]
     Indication: IMMUNISATION
     Dosage: UNK, SINGLE
     Dates: start: 20080516, end: 20080516
  9. VALTREX [Concomitant]
     Dosage: 500 MG, QD
     Route: 048
  10. COUMADIN [Concomitant]
     Dosage: 10 MG 4X/WK + 7.5 MG 3X/WK
     Route: 048
  11. FOLIC ACID [Concomitant]
     Dosage: 1 MG, QD
     Route: 048
  12. CYCLOSPORINE [Concomitant]
     Indication: IMMUNOSUPPRESSION
     Dosage: 300 MG, BID
     Route: 048
  13. NEXIUM [Concomitant]
     Dosage: 20 MG, QD
     Route: 048
  14. LOVENOX [Concomitant]
     Dosage: 20 MG, BID
     Dates: end: 20080501

REACTIONS (10)
  - FATIGUE [None]
  - HAEMOLYSIS [None]
  - HYPERTENSION [None]
  - HYPOXIA [None]
  - MENINGITIS MENINGOCOCCAL [None]
  - MENINGOCOCCAL SEPSIS [None]
  - MENORRHAGIA [None]
  - MYALGIA [None]
  - PLEURITIC PAIN [None]
  - PYREXIA [None]
